FAERS Safety Report 18109453 (Version 1)
Quarter: 2020Q3

REPORT INFORMATION
  Report Type: Spontaneous
  Country: AU (occurrence: AU)
  Receive Date: 20200804
  Receipt Date: 20200804
  Transmission Date: 20201103
  Serious: Yes (Death, Hospitalization)
  Sender: FDA-Public Use
  Company Number: AU-BAUSCH-BL-2020-021702

PATIENT
  Age: 70 Year
  Sex: Female

DRUGS (10)
  1. CYCLOPHOSPHAMIDE. [Suspect]
     Active Substance: CYCLOPHOSPHAMIDE
     Indication: BREAST CANCER STAGE I
     Dosage: ON DAY 1
     Route: 065
  2. DEXAMETHASONE. [Suspect]
     Active Substance: DEXAMETHASONE
     Dosage: ON DAYS 4 ?5
     Route: 065
  3. DEXAMETHASONE. [Suspect]
     Active Substance: DEXAMETHASONE
     Route: 065
  4. PREDNISONE. [Suspect]
     Active Substance: PREDNISONE
     Indication: PROPHYLAXIS OF NAUSEA AND VOMITING
  5. DEXAMETHASONE. [Suspect]
     Active Substance: DEXAMETHASONE
     Indication: BREAST CANCER STAGE I
     Dosage: ON DAY 1
     Route: 065
  6. DEXAMETHASONE. [Suspect]
     Active Substance: DEXAMETHASONE
     Indication: PROPHYLAXIS OF NAUSEA AND VOMITING
     Dosage: DAY 2?3
     Route: 065
  7. PREDNISONE. [Suspect]
     Active Substance: PREDNISONE
     Indication: BREAST CANCER STAGE I
     Dosage: 19 MG; EQUIVALENTS/DAY
     Route: 065
  8. PEGFILGRASTIM [Suspect]
     Active Substance: PEGFILGRASTIM
     Indication: BREAST CANCER STAGE I
     Dosage: ON DAY 2
     Route: 065
  9. AKYNZEO [Suspect]
     Active Substance: NETUPITANT\PALONOSETRON HYDROCHLORIDE
     Indication: BREAST CANCER STAGE I
     Dosage: SINGLE DOSE; FIXED DOSE
     Route: 065
  10. DOXORUBICIN [Suspect]
     Active Substance: DOXORUBICIN
     Indication: BREAST CANCER STAGE I
     Dosage: ON DAY 1
     Route: 065

REACTIONS (1)
  - Pneumocystis jirovecii pneumonia [Fatal]
